FAERS Safety Report 5359593-2 (Version None)
Quarter: 2007Q2

REPORT INFORMATION
  Report Type: 
  Country: None (occurrence: None)
  Receive Date: 20070530
  Receipt Date: 20070124
  Transmission Date: 20071010
  Serious: Yes (Hospitalization)
  Sender: FDA-Public Use
  Company Number: US200606003060

PATIENT
  Age: 37 Year
  Sex: Male
  Weight: 113.4 kg

DRUGS (5)
  1. ZYPREXA [Suspect]
     Dosage: 5 MG
     Dates: start: 20000701, end: 20030101
  2. PAROXETINE [Concomitant]
  3. FLUOXETINE [Concomitant]
  4. QUETIAPINE [Concomitant]
  5. CITALOPRAM HYDROBROMIDE [Concomitant]

REACTIONS (3)
  - BLOOD CHOLESTEROL INCREASED [None]
  - DIABETES MELLITUS NON-INSULIN-DEPENDENT [None]
  - METABOLIC SYNDROME [None]
